FAERS Safety Report 19607307 (Version 2)
Quarter: 2025Q4

REPORT INFORMATION
  Report Type: Spontaneous
  Country: EU (occurrence: EU)
  Receive Date: 20210726
  Receipt Date: 20251016
  Transmission Date: 20260119
  Serious: Yes (Hospitalization, Other)
  Sender: AUROBINDO
  Company Number: EU-MYLANLABS-2019M1125070

PATIENT
  Age: 74 Year
  Sex: Female

DRUGS (18)
  1. BISOPROLOL [Suspect]
     Active Substance: BISOPROLOL
     Indication: Arrhythmia
     Dosage: UNK
     Route: 065
  2. ENOXAPARIN [Suspect]
     Active Substance: ENOXAPARIN
     Indication: Anticoagulant therapy
     Dosage: UNK
     Route: 065
  3. ENOXAPARIN [Suspect]
     Active Substance: ENOXAPARIN
     Indication: Arrhythmia
     Dosage: UNK
     Route: 023
  4. ENOXAPARIN [Suspect]
     Active Substance: ENOXAPARIN
     Indication: Skin test
  5. HEPARIN [Suspect]
     Active Substance: HEPARIN SODIUM
     Indication: Anticoagulant therapy
     Dosage: UNK
     Route: 065
  6. HEPARIN [Suspect]
     Active Substance: HEPARIN SODIUM
     Indication: Skin test
     Dosage: UNK
     Route: 023
  7. HEPARIN [Suspect]
     Active Substance: HEPARIN SODIUM
     Dosage: UNK
     Route: 003
  8. ORGARAN [Interacting]
     Active Substance: DANAPAROID SODIUM
     Indication: Anticoagulant therapy
     Dosage: UNK
     Route: 065
  9. ORGARAN [Interacting]
     Active Substance: DANAPAROID SODIUM
     Indication: Skin test
     Dosage: UNK
     Route: 023
  10. LOVENOX [Suspect]
     Active Substance: ENOXAPARIN SODIUM
     Indication: Anticoagulant therapy
     Dosage: UNK
     Route: 023
  11. LOVENOX [Suspect]
     Active Substance: ENOXAPARIN SODIUM
     Indication: Skin test
  12. LOVENOX [Suspect]
     Active Substance: ENOXAPARIN SODIUM
     Indication: Arrhythmia
  13. NEFOPAM [Concomitant]
     Active Substance: NEFOPAM
     Indication: Product used for unknown indication
     Dosage: UNK
     Route: 065
  14. PANTOPRAZOLE [Concomitant]
     Active Substance: PANTOPRAZOLE
     Indication: Product used for unknown indication
     Dosage: UNK
     Route: 065
  15. KETOPROFEN [Concomitant]
     Active Substance: KETOPROFEN
     Indication: Product used for unknown indication
     Dosage: UNK
     Route: 065
  16. PHLOROGLUCINOL [Concomitant]
     Active Substance: PHLOROGLUCINOL
     Indication: Product used for unknown indication
     Dosage: UNK
     Route: 065
  17. TRAMADOL [Concomitant]
     Active Substance: TRAMADOL
     Indication: Product used for unknown indication
     Dosage: UNK
     Route: 065
  18. ARIXTRA [Concomitant]
     Active Substance: FONDAPARINUX SODIUM
     Indication: Skin test
     Dosage: UNK
     Route: 023

REACTIONS (9)
  - Acute generalised exanthematous pustulosis [Recovering/Resolving]
  - Leukocytosis [Recovering/Resolving]
  - Rash erythematous [Recovering/Resolving]
  - Pustule [Recovering/Resolving]
  - Rash [Unknown]
  - Skin exfoliation [Unknown]
  - Pyrexia [Unknown]
  - Drug interaction [Unknown]
  - Cross sensitivity reaction [Unknown]
